FAERS Safety Report 9611116 (Version 3)
Quarter: 2014Q1

REPORT INFORMATION
  Report Type: Report from Study
  Country: DE (occurrence: DE)
  Receive Date: 20131009
  Receipt Date: 20140304
  Transmission Date: 20141002
  Serious: Yes (Hospitalization, Other)
  Sender: FDA-Public Use
  Company Number: DE-EXELIXIS-XL18413003391

PATIENT
  Age: 78 Year
  Sex: Male
  Weight: 140 kg

DRUGS (7)
  1. XL184 [Suspect]
     Indication: PROSTATE CANCER
     Dosage: 60 MG, QD
     Route: 048
     Dates: start: 20130814
  2. XL184 [Suspect]
     Indication: PROSTATE CANCER
     Dosage: 5 MG, BID
     Route: 048
     Dates: start: 20130814
  3. CANDESARTAN CILEXETIL [Concomitant]
  4. FUROSEMIDE [Concomitant]
  5. GABAPENTIN [Concomitant]
  6. DICLOPHENAC [Concomitant]
  7. TRENANTONE [Concomitant]

REACTIONS (1)
  - Skin ulcer [Recovered/Resolved]
